FAERS Safety Report 8275168-X (Version None)
Quarter: 2012Q2

REPORT INFORMATION
  Report Type: 
  Country: None (occurrence: None)
  Receive Date: 20120411
  Receipt Date: 20120403
  Transmission Date: 20120825
  Serious: Yes (Hospitalization)
  Sender: FDA-Public Use
  Company Number: PHHY2012FR029665

PATIENT
  Sex: Female

DRUGS (9)
  1. TERCIAN [Concomitant]
  2. LOXAPINE HCL [Concomitant]
  3. IMOVANE [Concomitant]
  4. TRIHEXYPHENIDYL HYDROCHLORIDE [Concomitant]
  5. NEXIUM [Concomitant]
  6. METFORMIN SANDOZ [Suspect]
     Indication: TYPE 2 DIABETES MELLITUS
     Dosage: 1000 MG, BID
     Route: 048
     Dates: end: 20120303
  7. TOPIRAMATE [Concomitant]
  8. QUITAXON [Concomitant]
  9. CYMBALTA [Concomitant]

REACTIONS (7)
  - LACTIC ACIDOSIS [None]
  - DRUG LEVEL INCREASED [None]
  - RENAL FAILURE [None]
  - RENAL FAILURE ACUTE [None]
  - HAEMATURIA [None]
  - LEUKOCYTURIA [None]
  - PYELONEPHRITIS ACUTE [None]
